FAERS Safety Report 6964595-6 (Version None)
Quarter: 2010Q3

REPORT INFORMATION
  Report Type: 
  Country: None (occurrence: None)
  Receive Date: 20100903
  Receipt Date: 20100902
  Transmission Date: 20110219
  Serious: Yes (Other)
  Sender: FDA-Public Use
  Company Number: US-ASTRAZENECA-2007UW09245

PATIENT
  Age: 42 Year
  Sex: Male
  Weight: 90.3 kg

DRUGS (5)
  1. SEROQUEL [Suspect]
     Indication: DEPRESSION
     Dosage: 100-300 MG
     Route: 048
     Dates: start: 20000101, end: 20040326
  2. SEROQUEL [Suspect]
     Route: 048
     Dates: start: 20010101, end: 20030101
  3. SEROQUEL [Suspect]
     Route: 048
     Dates: start: 20030611
  4. LEXAPRO [Concomitant]
     Route: 048
     Dates: start: 20030611
  5. ATIVAN [Concomitant]
     Dosage: 5 TO 20 MG

REACTIONS (9)
  - BLOOD CHOLESTEROL INCREASED [None]
  - CARDIOVASCULAR DISORDER [None]
  - DIABETES MELLITUS [None]
  - DIABETIC GASTROPARESIS [None]
  - DIABETIC NEUROPATHY [None]
  - HYPERLIPIDAEMIA [None]
  - NEPHROPATHY [None]
  - NEUROPATHY PERIPHERAL [None]
  - TYPE 2 DIABETES MELLITUS [None]
